FAERS Safety Report 7231700-6 (Version None)
Quarter: 2011Q1

REPORT INFORMATION
  Report Type: 
  Country: None (occurrence: None)
  Receive Date: 20110118
  Receipt Date: 20110104
  Transmission Date: 20110831
  Serious: No
  Sender: FDA-Public Use
  Company Number: US-B.I. PHARMACEUTICALS,INC./RIDGEFIELD-2011-BP-00541BP

PATIENT
  Sex: Male

DRUGS (10)
  1. VICTOZA [Concomitant]
     Indication: DIABETES MELLITUS
  2. NEXIUM [Concomitant]
  3. PRADAXA [Suspect]
     Indication: ATRIAL FIBRILLATION
     Dosage: 300 MG
     Route: 048
     Dates: start: 20101201
  4. AVALIDE [Concomitant]
  5. RYTHMOL [Concomitant]
     Indication: ATRIAL FIBRILLATION
  6. ACTOS [Concomitant]
  7. ZETIA [Concomitant]
  8. KRILL OIL [Concomitant]
  9. CRESTOR [Concomitant]
     Indication: BLOOD CHOLESTEROL INCREASED
  10. GLUMETZA [Concomitant]

REACTIONS (6)
  - POST PROCEDURAL HAEMORRHAGE [None]
  - FLATULENCE [None]
  - DYSPEPSIA [None]
  - GASTROINTESTINAL SOUNDS ABNORMAL [None]
  - APPETITE DISORDER [None]
  - DIARRHOEA [None]
